FAERS Safety Report 7301905-4 (Version None)
Quarter: 2011Q1

REPORT INFORMATION
  Report Type: 
  Country: None (occurrence: None)
  Receive Date: 20110218
  Receipt Date: 20110204
  Transmission Date: 20110831
  Serious: Yes (Death)
  Sender: FDA-Public Use
  Company Number: FR-ROCHE-757942

PATIENT
  Age: 35 Year
  Sex: Female

DRUGS (2)
  1. LAMICTAL [Suspect]
     Indication: EPILEPSY
     Route: 048
  2. VALIUM [Suspect]
     Indication: EPILEPSY
     Route: 048

REACTIONS (5)
  - CYSTIC LYMPHANGIOMA [None]
  - SINGLE UMBILICAL ARTERY [None]
  - HEART DISEASE CONGENITAL [None]
  - CONGENITAL HAND MALFORMATION [None]
  - GENERALISED OEDEMA [None]
